FAERS Safety Report 25682308 (Version 3)
Quarter: 2025Q3

REPORT INFORMATION
  Report Type: Report from Study
  Country: US (occurrence: US)
  Receive Date: 20250814
  Receipt Date: 20250904
  Transmission Date: 20251021
  Serious: Yes (Death, Hospitalization)
  Sender: MERCK SHARP & DOHME LLC
  Company Number: US-009507513-2313963

PATIENT
  Sex: Male

DRUGS (1)
  1. KEYTRUDA [Suspect]
     Active Substance: PEMBROLIZUMAB
     Indication: Glioblastoma multiforme
     Dosage: 200 MG, Q21DAYS (ALSO REPORTED AS INFUSE 200MG VIA IVPB OVER 30 MINUTES EVERY 21 DAYS; STRENGTH: ...
     Route: 042
     Dates: start: 20250514, end: 20250721

REACTIONS (2)
  - Malignant neoplasm progression [Fatal]
  - Product use in unapproved indication [Unknown]

NARRATIVE: CASE EVENT DATE: 20250101
